FAERS Safety Report 8054655-3 (Version None)
Quarter: 2012Q1

REPORT INFORMATION
  Report Type: 
  Country: None (occurrence: None)
  Receive Date: 20120111
  Receipt Date: 20111227
  Transmission Date: 20120608
  Serious: Yes (Other)
  Sender: FDA-Public Use
  Company Number: 2011P1011567

PATIENT
  Age: 7 Year
  Sex: Female
  Weight: 24.4942 kg

DRUGS (3)
  1. CETIRIZINE HCL [Suspect]
     Indication: COUGH
     Dosage: 2.5 MG;AM ;  5 MG;HS
     Dates: start: 20111114, end: 20111116
  2. CETIRIZINE HCL [Suspect]
     Indication: COUGH
     Dosage: 2.5 MG;AM ;  5 MG;HS
     Dates: start: 20111114, end: 20111116
  3. VITAMIN TAB [Concomitant]

REACTIONS (6)
  - LIP INFECTION [None]
  - FACE INJURY [None]
  - LIP INJURY [None]
  - LOSS OF CONSCIOUSNESS [None]
  - WOUND INFECTION [None]
  - FALL [None]
